FAERS Safety Report 4438951-4 (Version None)
Quarter: 2004Q3

REPORT INFORMATION
  Report Type: 
  Country: None (occurrence: None)
  Receive Date: 20040901
  Receipt Date: 20030908
  Transmission Date: 20050211
  Serious: Yes (Hospitalization)
  Sender: FDA-Public Use
  Company Number: US-AMGEN-US047415

PATIENT
  Sex: Female

DRUGS (13)
  1. ENBREL [Suspect]
     Indication: PULMONARY FIBROSIS
     Route: 058
     Dates: start: 20030714, end: 20030825
  2. HYZAAR [Concomitant]
     Dates: start: 19790601
  3. FOSAMAX [Concomitant]
     Dates: start: 20020903
  4. PREMPRO 14/14 [Concomitant]
     Dates: start: 19890601
  5. GLUCOPHAGE [Concomitant]
     Dates: start: 20021115
  6. GLUCOTROL [Concomitant]
     Dates: start: 20021115
  7. HUMALOG [Concomitant]
     Dates: start: 20021115
  8. ROBITUSSIN [Concomitant]
     Dates: start: 20030531
  9. PARACETAMOL [Concomitant]
     Dates: start: 19830101
  10. CALCIUM WITH VITAMIN D [Concomitant]
     Dates: start: 20000401
  11. ZANTAC [Concomitant]
     Dates: start: 20030702
  12. VIOXX [Concomitant]
     Dates: start: 20030718
  13. HYDROCODONE BITARTRATE [Concomitant]
     Dates: start: 20030718

REACTIONS (4)
  - ABDOMINAL DISCOMFORT [None]
  - ASCITES [None]
  - CARBOHYDRATE ANTIGEN 125 INCREASED [None]
  - URINARY TRACT INFECTION [None]
